FAERS Safety Report 8223350-X (Version None)
Quarter: 2012Q1

REPORT INFORMATION
  Report Type: 
  Country: None (occurrence: None)
  Receive Date: 20120321
  Receipt Date: 20120309
  Transmission Date: 20120608
  Serious: Yes (Life-Threatening, Hospitalization)
  Sender: FDA-Public Use
  Company Number: US-ELI_LILLY_AND_COMPANY-US201201005594

PATIENT
  Age: 58 Year
  Sex: Female
  Weight: 71.202 kg

DRUGS (2)
  1. SYNTHROID [Concomitant]
  2. EVISTA [Suspect]
     Indication: OSTEOPENIA
     Dosage: 60 MG, QD
     Route: 048
     Dates: start: 20021016

REACTIONS (2)
  - PULMONARY EMBOLISM [None]
  - INTRACARDIAC THROMBUS [None]
